FAERS Safety Report 25435734 (Version 1)
Quarter: 2025Q2

REPORT INFORMATION
  Report Type: Spontaneous
  Country: US (occurrence: None)
  Receive Date: 20250613
  Receipt Date: 20250613
  Transmission Date: 20250716
  Serious: No
  Sender: FDA-CTU
  Company Number: None

PATIENT
  Age: 76 Year
  Sex: Female

DRUGS (1)
  1. VEVYE [Suspect]
     Active Substance: CYCLOSPORINE
     Dosage: FREQUENCY : TWICE A DAY;?
     Route: 047
     Dates: start: 20241121, end: 20250612

REACTIONS (3)
  - Lacrimation increased [None]
  - Reading disorder [None]
  - Visual impairment [None]

NARRATIVE: CASE EVENT DATE: 20250611
